FAERS Safety Report 4646591-7 (Version None)
Quarter: 2005Q2

REPORT INFORMATION
  Report Type: 
  Country: None (occurrence: None)
  Receive Date: 20050427
  Receipt Date: 20050112
  Transmission Date: 20051028
  Serious: No
  Sender: FDA-Public Use
  Company Number: US-GLAXOSMITHKLINE-A0540446A

PATIENT
  Age: 84 Year
  Sex: Female

DRUGS (3)
  1. FLOVENT [Suspect]
     Dosage: 2PUFF TWICE PER DAY
     Route: 055
  2. ATROVENT [Concomitant]
  3. LEVOXYL [Concomitant]

REACTIONS (1)
  - DYSPHONIA [None]
